FAERS Safety Report 19060919 (Version 2)
Quarter: 2022Q1

REPORT INFORMATION
  Report Type: Spontaneous
  Country: US (occurrence: US)
  Receive Date: 20210326
  Receipt Date: 20220209
  Transmission Date: 20220423
  Serious: Yes (Other)
  Sender: FDA-Public Use
  Company Number: US-AMGEN-USASP2021045226

PATIENT
  Age: 61 Year
  Sex: Male

DRUGS (3)
  1. OTEZLA [Suspect]
     Active Substance: APREMILAST
     Indication: Psoriatic arthropathy
     Dosage: 30 MILLIGRAM, BID
     Route: 048
     Dates: start: 20190215
  2. ESZOPICLONE [Concomitant]
     Active Substance: ESZOPICLONE
     Dosage: UNK
  3. MELOXICAM [Concomitant]
     Active Substance: MELOXICAM
     Dosage: UNK

REACTIONS (3)
  - Psoriatic arthropathy [Not Recovered/Not Resolved]
  - Product dose omission issue [Unknown]
  - Lymphadenopathy [Not Recovered/Not Resolved]

NARRATIVE: CASE EVENT DATE: 20210201
